FAERS Safety Report 8604374-7 (Version None)
Quarter: 2012Q3

REPORT INFORMATION
  Report Type: 
  Country: None (occurrence: None)
  Receive Date: 20120820
  Receipt Date: 20120809
  Transmission Date: 20120928
  Serious: Yes (Hospitalization)
  Sender: FDA-Public Use
  Company Number: US-BAYER-2012-082441

PATIENT
  Age: 24 Year
  Sex: Female

DRUGS (5)
  1. VALTREX [Concomitant]
     Dosage: 500 MG, UNK
     Dates: start: 20070529
  2. HYDROCODONE BITARTRATE AND ACETAMINOPHEN [Concomitant]
     Dosage: 5MG/500 MG,  EVERY 4 HOURS,PRN
     Route: 048
     Dates: start: 20070823
  3. ZOVIRAX [Concomitant]
     Dosage: 5 %, UNK
     Dates: start: 20070529
  4. ANALPRAM HC [Concomitant]
     Dosage: 2.5 %, UNK
     Dates: start: 20070601
  5. YAZ [Suspect]
     Dosage: UNK

REACTIONS (2)
  - CEREBRAL VENOUS THROMBOSIS [None]
  - JUGULAR VEIN THROMBOSIS [None]
